FAERS Safety Report 6979531-6 (Version None)
Quarter: 2010Q3

REPORT INFORMATION
  Report Type: 
  Country: None (occurrence: None)
  Receive Date: 20100913
  Receipt Date: 20100831
  Transmission Date: 20110219
  Serious: Yes (Other)
  Sender: FDA-Public Use
  Company Number: PHHY2010AU58095

PATIENT
  Sex: Female

DRUGS (4)
  1. RITALIN [Suspect]
     Indication: ATTENTION DEFICIT/HYPERACTIVITY DISORDER
     Dosage: 30 MG, PER DAY, SPLIT IN TO 10 MG
  2. RITALIN [Suspect]
     Dosage: 40 MG/ DAY (SPLIT 20 MG, 10 MG, AND 10 MG)
  3. LAMICTAL [Concomitant]
  4. CIPRAMIL [Concomitant]

REACTIONS (3)
  - ACCIDENT [None]
  - DISTURBANCE IN ATTENTION [None]
  - HEART RATE INCREASED [None]
